FAERS Safety Report 5838386-3 (Version None)
Quarter: 2008Q3

REPORT INFORMATION
  Report Type: 
  Country: None (occurrence: None)
  Receive Date: 20080808
  Receipt Date: 20080801
  Transmission Date: 20090109
  Serious: Yes (Other)
  Sender: FDA-Public Use
  Company Number: CA-ALLERGAN-0801257US

PATIENT
  Sex: Female

DRUGS (1)
  1. BOTOX [Suspect]
     Indication: HYPERTONIC BLADDER
     Dosage: 300 UNITS, SINGLE
     Route: 030
     Dates: start: 20080110, end: 20080110

REACTIONS (3)
  - BLADDER SPASM [None]
  - URINARY RETENTION [None]
  - URINARY TRACT INFECTION [None]
